FAERS Safety Report 4315486-0 (Version None)
Quarter: 2004Q1

REPORT INFORMATION
  Report Type: 
  Country: None (occurrence: None)
  Receive Date: 20040310
  Receipt Date: 20040224
  Transmission Date: 20041129
  Serious: Yes (Hospitalization)
  Sender: FDA-Public Use
  Company Number: US-JNJFOC-20040103684

PATIENT
  Age: 71 Year
  Sex: Female

DRUGS (4)
  1. DURAGESIC [Suspect]
     Indication: PAIN
     Dosage: SEE IMAGE
     Route: 062
     Dates: end: 20031001
  2. DURAGESIC [Suspect]
     Indication: PAIN
     Dosage: SEE IMAGE
     Route: 062
     Dates: start: 20031001
  3. VICODIN [Concomitant]
  4. ALLEGRA [Concomitant]

REACTIONS (9)
  - ASTHENIA [None]
  - DECREASED APPETITE [None]
  - DECREASED INTEREST [None]
  - DIARRHOEA [None]
  - DRUG WITHDRAWAL SYNDROME [None]
  - INFLUENZA LIKE ILLNESS [None]
  - NAUSEA [None]
  - SLEEP DISORDER [None]
  - WEIGHT DECREASED [None]
